FAERS Safety Report 4420422-2 (Version None)
Quarter: 2004Q3

REPORT INFORMATION
  Report Type: 
  Country: None (occurrence: None)
  Receive Date: 20040809
  Receipt Date: 20040225
  Transmission Date: 20050211
  Serious: No
  Sender: FDA-Public Use
  Company Number: US-GLAXOSMITHKLINE-A0499831A

PATIENT
  Sex: Female

DRUGS (2)
  1. PAXIL CR [Suspect]
     Dosage: 50MG PER DAY
     Route: 048
     Dates: start: 20031201
  2. TRAZODONE HCL [Concomitant]

REACTIONS (2)
  - ARTHRALGIA [None]
  - TOOTHACHE [None]
